FAERS Safety Report 18774400 (Version 1)
Quarter: 2021Q1

REPORT INFORMATION
  Report Type: Spontaneous
  Country: US (occurrence: US)
  Receive Date: 20210122
  Receipt Date: 20210122
  Transmission Date: 20210419
  Serious: Yes (Disabling)
  Sender: FDA-Public Use
  Company Number: None

PATIENT
  Age: 53 Year
  Sex: Female
  Weight: 151.65 kg

DRUGS (9)
  1. CLARITIN [Concomitant]
     Active Substance: LORATADINE
  2. PRILOSEC [Concomitant]
     Active Substance: OMEPRAZOLE MAGNESIUM
  3. SPIRONOLACTALONE [Concomitant]
  4. ESTRADIOL TRANSDERMAL SYSTEM [Concomitant]
     Active Substance: ESTRADIOL
  5. RYBELSUS [Suspect]
     Active Substance: SEMAGLUTIDE
     Indication: DIABETES MELLITUS
     Route: 048
     Dates: start: 20200126, end: 20210122
  6. METROPOLOL [Concomitant]
     Active Substance: METOPROLOL
  7. FLECAINIDE [Concomitant]
     Active Substance: FLECAINIDE
  8. PROGESTERONE. [Concomitant]
     Active Substance: PROGESTERONE
  9. PAROXETINE. [Concomitant]
     Active Substance: PAROXETINE

REACTIONS (2)
  - Blood glucose decreased [None]
  - Vision blurred [None]

NARRATIVE: CASE EVENT DATE: 20210108
